FAERS Safety Report 24178693 (Version 1)
Quarter: 2024Q3

REPORT INFORMATION
  Report Type: Spontaneous
  Country: CN (occurrence: CN)
  Receive Date: 20240806
  Receipt Date: 20240806
  Transmission Date: 20241016
  Serious: Yes (Other)
  Sender: BAYER
  Company Number: CN-BAYER-2024A112674

PATIENT
  Age: 35 Year
  Sex: Female

DRUGS (1)
  1. AVELOX [Suspect]
     Active Substance: MOXIFLOXACIN HYDROCHLORIDE
     Indication: Tonsillitis bacterial
     Dosage: 400 MG, QD
     Route: 048
     Dates: start: 20240722, end: 20240724

REACTIONS (5)
  - Serum amyloid A protein increased [None]
  - Nausea [Recovering/Resolving]
  - Vomiting [Recovering/Resolving]
  - C-reactive protein increased [None]
  - Off label use [None]

NARRATIVE: CASE EVENT DATE: 20240722
